FAERS Safety Report 9438796 (Version 3)
Quarter: 2013Q4

REPORT INFORMATION
  Report Type: Spontaneous
  Country: FR (occurrence: FR)
  Receive Date: 20130802
  Receipt Date: 20131010
  Transmission Date: 20140711
  Serious: Yes (Hospitalization)
  Sender: FDA-Public Use
  Company Number: FR-ROCHE-1254968

PATIENT
  Age: 36 Year
  Sex: Male

DRUGS (8)
  1. CELLCEPT [Suspect]
     Indication: RENAL TRANSPLANT
     Route: 065
  2. SOLIRIS [Suspect]
     Indication: PRODUCT USED FOR UNKNOWN INDICATION
     Route: 065
     Dates: start: 20130612
  3. SOLIRIS [Suspect]
     Route: 065
     Dates: end: 20130703
  4. SOLIRIS [Suspect]
     Route: 065
     Dates: start: 20130710
  5. SOLIRIS [Suspect]
     Route: 065
     Dates: start: 20130711
  6. SOLIRIS [Suspect]
     Route: 065
     Dates: start: 20130720
  7. ORACILLINE [Suspect]
     Indication: PRODUCT USED FOR UNKNOWN INDICATION
     Route: 048
     Dates: start: 20130612
  8. PROGRAF [Suspect]
     Indication: PRODUCT USED FOR UNKNOWN INDICATION
     Route: 065

REACTIONS (1)
  - Renal haematoma [Recovered/Resolved with Sequelae]
